FAERS Safety Report 23486550 (Version 1)
Quarter: 2024Q1

REPORT INFORMATION
  Report Type: Spontaneous
  Country: US (occurrence: None)
  Receive Date: 20240205
  Receipt Date: 20240205
  Transmission Date: 20240410
  Serious: Yes (Hospitalization)
  Sender: FDA-Public Use
  Company Number: None

PATIENT
  Sex: Male

DRUGS (5)
  1. KANUMA [Suspect]
     Active Substance: SEBELIPASE ALFA
     Indication: Metabolic disorder
     Dosage: FREQUENCY : WEEKLY;?
     Route: 042
     Dates: start: 202207
  2. KANUMA [Suspect]
     Active Substance: SEBELIPASE ALFA
     Indication: Lipid metabolism disorder
  3. FAMOTIDINE [Suspect]
     Active Substance: FAMOTIDINE
     Indication: Metabolic disorder
     Dosage: FREQUENCY : AS DIRECTED;?
     Dates: start: 202207
  4. FAMOTIDINE [Suspect]
     Active Substance: FAMOTIDINE
     Indication: Lipid metabolism disorder
  5. HEPARIN L/L FLUSI-SYR [Concomitant]

REACTIONS (2)
  - Pyrexia [None]
  - Therapy interrupted [None]
